FAERS Safety Report 7496620-0 (Version None)
Quarter: 2011Q2

REPORT INFORMATION
  Report Type: 
  Country: None (occurrence: None)
  Receive Date: 20110523
  Receipt Date: 20110511
  Transmission Date: 20111010
  Serious: Yes (Hospitalization)
  Sender: FDA-Public Use
  Company Number: US-SANOFI-AVENTIS-2011SA030173

PATIENT
  Age: 74 Year
  Sex: Male

DRUGS (10)
  1. METFORMAX [Concomitant]
  2. BETA BLOCKING AGENTS [Concomitant]
  3. ASPIRIN [Suspect]
     Route: 065
  4. HEPARIN [Concomitant]
     Dates: start: 20101115
  5. ANGIOTENSIN II ANTAGONISTS [Concomitant]
  6. ALPHA-ADRENOCEPTOR BLOCKING AGENTS [Concomitant]
  7. CLOPIDOGREL BISULFATE [Suspect]
     Route: 048
     Dates: start: 20101116
  8. MIXTARD HM [Concomitant]
  9. ALL OTHER THERAPEUTIC PRODUCTS [Concomitant]
  10. DIURETICS [Concomitant]

REACTIONS (4)
  - GASTRITIS [None]
  - ABDOMINAL PAIN [None]
  - NAUSEA [None]
  - DYSPEPSIA [None]
